FAERS Safety Report 8282174-8 (Version None)
Quarter: 2012Q2

REPORT INFORMATION
  Report Type: 
  Country: None (occurrence: None)
  Receive Date: 20120413
  Receipt Date: 20120410
  Transmission Date: 20120825
  Serious: Yes (Other)
  Sender: FDA-Public Use
  Company Number: PHHY2012JP030745

PATIENT
  Age: 88 Year
  Sex: Female

DRUGS (3)
  1. LAMISIL [Suspect]
     Indication: ONYCHOMYCOSIS
     Dosage: UNK
     Dates: start: 20120203
  2. RISPERDAL [Concomitant]
     Indication: AGGRESSION
  3. RISPERDAL [Concomitant]
     Indication: HALLUCINATION, AUDITORY

REACTIONS (2)
  - DEPRESSION [None]
  - DIZZINESS [None]
